FAERS Safety Report 4909145-0 (Version None)
Quarter: 2006Q1

REPORT INFORMATION
  Report Type: 
  Country: None (occurrence: None)
  Receive Date: 20060213
  Receipt Date: 20060202
  Transmission Date: 20060701
  Serious: Yes (Hospitalization)
  Sender: FDA-Public Use
  Company Number: JP-JNJFOC-20060201215

PATIENT
  Sex: Female
  Weight: 43 kg

DRUGS (9)
  1. REMICADE [Suspect]
     Route: 042
  2. REMICADE [Suspect]
     Indication: CROHN'S DISEASE
     Route: 042
  3. PREDNISOLONE [Concomitant]
     Indication: CROHN'S DISEASE
     Route: 048
  4. PREDONINE [Concomitant]
     Indication: CROHN'S DISEASE
     Route: 048
  5. PREDONINE [Concomitant]
     Route: 042
  6. SALAZOPYRIN [Concomitant]
     Indication: CROHN'S DISEASE
     Route: 048
  7. LECTISOL [Concomitant]
     Route: 048
  8. AZELASTINE HCL [Concomitant]
     Route: 048
  9. COLCHICINE [Concomitant]
     Route: 048

REACTIONS (1)
  - BREAST CANCER [None]
